FAERS Safety Report 8257563-8 (Version None)
Quarter: 2012Q2

REPORT INFORMATION
  Report Type: 
  Country: None (occurrence: None)
  Receive Date: 20120403
  Receipt Date: 20120327
  Transmission Date: 20120825
  Serious: Yes (Hospitalization)
  Sender: FDA-Public Use
  Company Number: DE-ALLERGAN-1109808US

PATIENT
  Age: 61 Year
  Sex: Female

DRUGS (1)
  1. OZURDEX [Suspect]
     Indication: MACULAR OEDEMA
     Dosage: UNK
     Dates: start: 20110501, end: 20110501

REACTIONS (2)
  - OCULAR HYPERTENSION [None]
  - VOMITING [None]
